FAERS Safety Report 16368810 (Version 1)
Quarter: 2019Q2

REPORT INFORMATION
  Report Type: Spontaneous
  Country: CN (occurrence: CN)
  Receive Date: 20190529
  Receipt Date: 20190529
  Transmission Date: 20190711
  Serious: Yes (Disabling)
  Sender: FDA-Public Use
  Company Number: CN-PFIZER INC-2019226029

PATIENT
  Age: 71 Year
  Sex: Male
  Weight: 71 kg

DRUGS (2)
  1. SERETIDE [Suspect]
     Active Substance: FLUTICASONE PROPIONATE\SALMETEROL XINAFOATE
     Indication: THERAPEUTIC PROCEDURE
     Dosage: 50.000 UG, 2X/DAY
     Dates: start: 20190515, end: 20190515
  2. VFEND [Suspect]
     Active Substance: VORICONAZOLE
     Indication: THERAPEUTIC PROCEDURE
     Dosage: 200.000 MG, 2X/DAY
     Route: 042
     Dates: start: 20190508, end: 20190514

REACTIONS (1)
  - Anaphylactic shock [Recovering/Resolving]

NARRATIVE: CASE EVENT DATE: 20190515
